FAERS Safety Report 4764547-0 (Version None)
Quarter: 2005Q3

REPORT INFORMATION
  Report Type: 
  Country: None (occurrence: None)
  Receive Date: 20050909
  Receipt Date: 20050829
  Transmission Date: 20060218
  Serious: Yes (Hospitalization)
  Sender: FDA-Public Use
  Company Number: FR-BRISTOL-MYERS SQUIBB COMPANY-13092945

PATIENT
  Age: 34 Year
  Sex: Female

DRUGS (2)
  1. IXABEPILONE [Suspect]
     Indication: BREAST CANCER
     Dosage: PER PROTOCOL GIVEN ON DAY 1 EVERY 3 WEEK CYCLE.
     Route: 042
     Dates: start: 20050608, end: 20050608
  2. CAPECITABINE [Suspect]
     Indication: BREAST CANCER
     Dosage: PER PROTOCOL GIVEN DAILY FOR 14 DAYS FOLLOWED BY A 7 DAY REST EVERY 3 WEEK CYCLE.
     Route: 048
     Dates: start: 20050608, end: 20050622

REACTIONS (1)
  - PARONYCHIA [None]
